FAERS Safety Report 22092523 (Version 1)
Quarter: 2023Q1

REPORT INFORMATION
  Report Type: Spontaneous
  Country: CN (occurrence: CN)
  Receive Date: 20230314
  Receipt Date: 20230314
  Transmission Date: 20230417
  Serious: Yes (Hospitalization, Other)
  Sender: FDA-Public Use
  Company Number: CN-MLMSERVICE-2023022741300191

PATIENT
  Age: 53 Year
  Sex: Female

DRUGS (2)
  1. LETROZOLE [Suspect]
     Active Substance: LETROZOLE
     Indication: Metastases to bone
     Dosage: 2.5 MG WAS ADMINISTERED ONCE DAILY FOR 28 DAYS. EACH CYCLE WAS A 28-DAY CYCLE
     Route: 048
     Dates: start: 201910
  2. PALBOCICLIB [Suspect]
     Active Substance: PALBOCICLIB
     Indication: Breast cancer stage IV
     Dosage: 125 MG ONCE DAILY FOR 21 DAYS. EACH CYCLE WAS A 28-DAY CYCLE
     Dates: start: 201910

REACTIONS (2)
  - Platelet count decreased [Recovered/Resolved]
  - Neutrophil count decreased [Recovered/Resolved]

NARRATIVE: CASE EVENT DATE: 20190101
